FAERS Safety Report 6507558-7 (Version None)
Quarter: 2009Q4

REPORT INFORMATION
  Report Type: 
  Country: None (occurrence: None)
  Receive Date: 20091221
  Receipt Date: 20091209
  Transmission Date: 20100525
  Serious: Yes (Hospitalization, Other)
  Sender: FDA-Public Use
  Company Number: JP-BRISTOL-MYERS SQUIBB COMPANY-14870240

PATIENT
  Age: 64 Year
  Sex: Female
  Weight: 45 kg

DRUGS (5)
  1. ABILIFY [Suspect]
     Indication: SCHIZOPHRENIA
     Dosage: 10MAR07-UNK:3MG UNK-UNK:9MG,15MG UNK-DEC07:21MG DEC07-14DEC07:24MG 15DEC07-FEB08:27MG
     Route: 048
     Dates: start: 20070310
  2. LITHIUM CARBONATE [Concomitant]
     Dosage: TABS
     Dates: start: 20060701
  3. CLONAZEPAM [Concomitant]
     Dates: start: 20070401, end: 20080301
  4. DIAZEPAM [Concomitant]
     Dates: start: 20071201, end: 20080201
  5. SEROQUEL [Concomitant]

REACTIONS (7)
  - ABNORMAL BEHAVIOUR [None]
  - DELUSION [None]
  - HALLUCINATION, AUDITORY [None]
  - IRRITABILITY [None]
  - PORIOMANIA [None]
  - STUPOR [None]
  - THINKING ABNORMAL [None]
